FAERS Safety Report 20718609 (Version 1)
Quarter: 2022Q2

REPORT INFORMATION
  Report Type: Spontaneous
  Country: US (occurrence: None)
  Receive Date: 20220418
  Receipt Date: 20220418
  Transmission Date: 20220720
  Serious: No
  Sender: FDA-Public Use
  Company Number: US-SUPERNUS Pharmaceuticals, Inc.-SUP202202-000210

PATIENT
  Age: 9 Year

DRUGS (1)
  1. QELBREE [Suspect]
     Active Substance: VILOXAZINE HYDROCHLORIDE
     Indication: Product used for unknown indication
     Dosage: 100MG

REACTIONS (4)
  - Chest pain [Unknown]
  - Tachycardia [Unknown]
  - Akathisia [Unknown]
  - Abdominal pain upper [Unknown]
